FAERS Safety Report 9871649 (Version 1)
Quarter: 2014Q1

REPORT INFORMATION
  Report Type: Report from Study
  Country: US (occurrence: US)
  Receive Date: 20140205
  Receipt Date: 20140205
  Transmission Date: 20141002
  Serious: Yes (Other)
  Sender: FDA-Public Use
  Company Number: US-ALEXION PHARMACEUTICALS INC.-A201400165

PATIENT
  Age: 60 Year
  Sex: Male

DRUGS (7)
  1. SOLIRIS [Suspect]
     Indication: PAROXYSMAL NOCTURNAL HAEMOGLOBINURIA
     Dosage: 900 MG, UNK
     Route: 042
     Dates: start: 20070518
  2. VITAMIN B6 [Concomitant]
     Indication: SUPPLEMENTATION THERAPY
     Dosage: 1 DF, QD
     Dates: start: 20100713
  3. VITAMIN B12                        /00056201/ [Concomitant]
     Indication: SUPPLEMENTATION THERAPY
     Dosage: 1 DF, QD
     Dates: start: 20100713
  4. COUMADINE [Concomitant]
     Indication: ANTICOAGULANT THERAPY
     Dosage: UNK, VARIABLE
     Dates: start: 20100713
  5. FOLIC ACID [Concomitant]
     Indication: PRODUCT USED FOR UNKNOWN INDICATION
     Dosage: UNK
     Dates: start: 20100713
  6. PROCRIT                            /00928302/ [Concomitant]
     Indication: HAEMOGLOBIN DECREASED
     Dosage: UNK, PRN, INJECTION
     Dates: start: 20100713
  7. PROCRIT                            /00928302/ [Concomitant]
     Dosage: UNK
     Dates: start: 20131227

REACTIONS (2)
  - Haemoglobin decreased [Unknown]
  - Packed red blood cell transfusion [Unknown]
